FAERS Safety Report 17192122 (Version 4)
Quarter: 2020Q1

REPORT INFORMATION
  Report Type: Spontaneous
  Country: US (occurrence: US)
  Receive Date: 20191223
  Receipt Date: 20200306
  Transmission Date: 20200409
  Serious: Yes (Hospitalization, Other)
  Sender: FDA-Public Use
  Company Number: US-GW PHARMA-201912USGW4644

PATIENT

DRUGS (15)
  1. LAMICTAL [Concomitant]
     Active Substance: LAMOTRIGINE
     Dosage: START DATE: 10 JAN 2020, 200 MILLIGRAM
     Route: 048
  2. ONFI [Interacting]
     Active Substance: CLOBAZAM
     Indication: EPILEPSY
     Dosage: 1.16 MG/KG/DAY, 20 MILLIGRAM, TID
     Route: 048
  3. EPIDIOLEX [Suspect]
     Active Substance: CANNABIDIOL
     Indication: LENNOX-GASTAUT SYNDROME
     Dosage: 5.02 MG/KG/DAY, 130 MILLIGRAM, BID
     Route: 048
     Dates: start: 20191209
  4. IPRATROPIUM BROMIDE. [Concomitant]
     Active Substance: IPRATROPIUM BROMIDE
     Indication: NASAL CONGESTION
     Dosage: UNK, Q4 HOURS PRN
  5. ATIVAN [Concomitant]
     Active Substance: LORAZEPAM
     Indication: PRODUCT USED FOR UNKNOWN INDICATION
     Dosage: 1 TABLET 3-4 TIMES DAILY
     Route: 048
  6. EPIDIOLEX [Interacting]
     Active Substance: CANNABIDIOL
     Dosage: START: 10 JAN 2020, STOP: FEB 2020, 7.73 MG/KG/DAY, 200 MILLIGRAM, BID
     Route: 048
  7. EPIDIOLEX [Interacting]
     Active Substance: CANNABIDIOL
     Dosage: START: 12 FEB 2020, 10.05 MG/KG/DAY, 260 MILLIGRAM, BID
     Route: 048
  8. LAMICTAL [Concomitant]
     Active Substance: LAMOTRIGINE
     Indication: PRODUCT USED FOR UNKNOWN INDICATION
     Dosage: 100 MILLIGRAM, TID
     Route: 048
  9. DIASTAT ACUDIAL [Concomitant]
     Active Substance: DIAZEPAM
     Indication: GENERALISED TONIC-CLONIC SEIZURE
     Dosage: UNK
     Route: 065
  10. SINGULAIR [Concomitant]
     Active Substance: MONTELUKAST SODIUM
     Indication: PRODUCT USED FOR UNKNOWN INDICATION
     Dosage: 10 MILLIGRAM, QD AT BEDTIME
     Route: 048
  11. KEPPRA [Concomitant]
     Active Substance: LEVETIRACETAM
     Indication: PRODUCT USED FOR UNKNOWN INDICATION
     Dosage: 1200 MILLIGRAM, BID
     Route: 048
  12. ACETAMINOPHEN. [Concomitant]
     Active Substance: ACETAMINOPHEN
     Indication: PRODUCT USED FOR UNKNOWN INDICATION
     Dosage: UNK
     Route: 054
  13. VALPROIC ACID [VALPROATE SODIUM] [Concomitant]
     Active Substance: VALPROATE SODIUM
     Indication: PRODUCT USED FOR UNKNOWN INDICATION
     Dosage: 300 MILLIGRAM, TID
     Route: 065
  14. ONFI [Interacting]
     Active Substance: CLOBAZAM
     Dosage: START: UNK, STOP: 10 JAN 2020, 10 MILLIGRAM, BID
     Route: 048
  15. XOPENEX [Concomitant]
     Active Substance: LEVALBUTEROL HYDROCHLORIDE
     Indication: PRODUCT USED FOR UNKNOWN INDICATION
     Dosage: 1.25 MG/ML AS NEEDED

REACTIONS (12)
  - Pneumonia aspiration [Recovered/Resolved]
  - Muscular weakness [Unknown]
  - Encephalopathy [Unknown]
  - Drug interaction [Unknown]
  - Chills [Recovering/Resolving]
  - Lethargy [Unknown]
  - Respiratory distress [Unknown]
  - Heart rate increased [Recovering/Resolving]
  - Pneumonia aspiration [Not Recovered/Not Resolved]
  - Seizure [Unknown]
  - Muscular weakness [Recovering/Resolving]
  - Somnolence [Unknown]

NARRATIVE: CASE EVENT DATE: 2019
